FAERS Safety Report 10811243 (Version 1)
Quarter: 2015Q1

REPORT INFORMATION
  Report Type: Spontaneous
  Country: US (occurrence: None)
  Receive Date: 20150213
  Receipt Date: 20150213
  Transmission Date: 20150721
  Serious: No
  Sender: FDA-Public Use
  Company Number: None

PATIENT
  Age: 65 Year
  Sex: Female

DRUGS (1)
  1. METROPOLOL [Suspect]
     Active Substance: METOPROLOL
     Indication: HEART RATE IRREGULAR
     Dosage: 25 MG/PILL 1/2 PILL AT BEDTIME BY MOUTH
     Route: 048
     Dates: start: 201407

REACTIONS (2)
  - Disease recurrence [None]
  - Wrong technique in drug usage process [None]

NARRATIVE: CASE EVENT DATE: 20150127
